FAERS Safety Report 9423352 (Version 1)
Quarter: 2013Q3

REPORT INFORMATION
  Report Type: Spontaneous
  Country: US (occurrence: US)
  Receive Date: 20130726
  Receipt Date: 20130726
  Transmission Date: 20140515
  Serious: Yes (Other)
  Sender: FDA-Public Use
  Company Number: US-BRISTOL-MYERS SQUIBB COMPANY-19118454

PATIENT
  Sex: 0

DRUGS (1)
  1. ERBITUX [Suspect]
     Dosage: LONG TERM USE:7-8YRS

REACTIONS (1)
  - Peroneal nerve palsy [Unknown]
